FAERS Safety Report 10751413 (Version 1)
Quarter: 2015Q1

REPORT INFORMATION
  Report Type: Spontaneous
  Country: US (occurrence: None)
  Receive Date: 20150129
  Receipt Date: 20150129
  Transmission Date: 20150721
  Serious: Yes (Other)
  Sender: FDA-Public Use
  Company Number: None

PATIENT
  Age: 56 Year
  Sex: Female
  Weight: 97.07 kg

DRUGS (10)
  1. HUMIRA [Suspect]
     Active Substance: ADALIMUMAB
     Route: 058
     Dates: start: 20141015, end: 20150127
  2. NEBIVOLOL [Concomitant]
     Active Substance: NEBIVOLOL
  3. MESALAMINE. [Concomitant]
     Active Substance: MESALAMINE
  4. LEVOTHYROXINE [Concomitant]
     Active Substance: LEVOTHYROXINE
  5. VITAMIN D [Concomitant]
     Active Substance: CHOLECALCIFEROL
  6. PYRIDOSTIGMINE [Concomitant]
     Active Substance: PYRIDOSTIGMINE
  7. HYDROCODONE/APAP [Concomitant]
     Active Substance: ACETAMINOPHEN\HYDROCODONE
  8. HCTZ [Concomitant]
     Active Substance: HYDROCHLOROTHIAZIDE
  9. CYMBALTA [Concomitant]
     Active Substance: DULOXETINE HYDROCHLORIDE
  10. CALCIUM [Concomitant]
     Active Substance: CALCIUM

REACTIONS (2)
  - Myasthenia gravis [None]
  - Tendon discomfort [None]

NARRATIVE: CASE EVENT DATE: 20141015
